FAERS Safety Report 11587953 (Version 2)
Quarter: 2015Q4

REPORT INFORMATION
  Report Type: Spontaneous
  Country: SE (occurrence: SE)
  Receive Date: 20151001
  Receipt Date: 20151005
  Transmission Date: 20160304
  Serious: Yes (Death, Hospitalization, Other)
  Sender: FDA-Public Use
  Company Number: SE-009507513-1504SWE009246

PATIENT
  Age: 52 Year
  Sex: Female

DRUGS (16)
  1. DAPTOMYCIN. [Suspect]
     Active Substance: DAPTOMYCIN
     Dosage: 350 MG, UNKNOWN
     Route: 042
     Dates: start: 20140130, end: 20140205
  2. ESOMEPRAZOL ACTAVIS [Concomitant]
     Active Substance: ESOMEPRAZOLE
     Dosage: 20 MG, UNK
  3. NOXAFIL [Concomitant]
     Active Substance: POSACONAZOLE
     Dosage: 40 MG/ML
  4. URSOFALK [Concomitant]
     Active Substance: URSODIOL
     Dosage: 50MG/ML, UNK
  5. BISOPROLOL [Concomitant]
     Active Substance: BISOPROLOL
     Dosage: 1.25 MG
  6. DAPTOMYCIN. [Suspect]
     Active Substance: DAPTOMYCIN
     Indication: ENDOCARDITIS
     Dosage: 350 MG, UNKNOWN
     Route: 042
     Dates: start: 20140120, end: 20140125
  7. VALACYCLOVIR HYDROCHLORIDE. [Concomitant]
     Active Substance: VALACYCLOVIR HYDROCHLORIDE
     Dosage: 250 MG, UNK
  8. CORTISONE ACETATE. [Concomitant]
     Active Substance: CORTISONE ACETATE
  9. PREDNISOLONE. [Concomitant]
     Active Substance: PREDNISOLONE
     Dosage: 5 MG, UNK
  10. NEORAL SANDIMMUN [Concomitant]
     Active Substance: CYCLOSPORINE
     Dosage: 100 MG/ML
  11. CIPROFLOXACIN ACTAVIS (CIPROFLOXACIN HYDROCHLORIDE) [Concomitant]
     Dosage: 500 MG, UNK
  12. METOPROLOL [Concomitant]
     Active Substance: METOPROLOL
  13. DAPTOMYCIN. [Suspect]
     Active Substance: DAPTOMYCIN
     Dosage: 455 MG, UNKNOWN
     Route: 042
     Dates: start: 20140126, end: 20140129
  14. ENTOCORT [Concomitant]
     Active Substance: BUDESONIDE
     Dosage: 3 MG, UNK
  15. FURIX [Concomitant]
     Active Substance: FUROSEMIDE
     Dosage: 30 MG, UNK
  16. SPIRONOLACTONE. [Concomitant]
     Active Substance: SPIRONOLACTONE
     Dosage: 25 MG, UNK

REACTIONS (1)
  - Hepatic failure [Fatal]
